FAERS Safety Report 6934074-0 (Version None)
Quarter: 2010Q3

REPORT INFORMATION
  Report Type: 
  Country: None (occurrence: None)
  Receive Date: 20100820
  Receipt Date: 20100806
  Transmission Date: 20110219
  Serious: No
  Sender: FDA-Public Use
  Company Number: B0667767A

PATIENT
  Age: 19 Year
  Sex: Female

DRUGS (2)
  1. ZANAMIVIR [Suspect]
     Indication: INFLUENZA
     Route: 065
  2. RITODRINE HYDROCHLORIDE [Suspect]

REACTIONS (2)
  - DRUG EXPOSURE DURING PREGNANCY [None]
  - LIVE BIRTH [None]
